FAERS Safety Report 4389131-2 (Version None)
Quarter: 2004Q3

REPORT INFORMATION
  Report Type: 
  Country: None (occurrence: None)
  Receive Date: 20040702
  Receipt Date: 20030529
  Transmission Date: 20050211
  Serious: No
  Sender: FDA-Public Use
  Company Number: UNKNOWN

PATIENT
  Sex: Female

DRUGS (1)
  1. PARNATE [Suspect]
     Indication: ILL-DEFINED DISORDER
     Route: 048

REACTIONS (3)
  - ASTHENIA [None]
  - DRUG INEFFECTIVE [None]
  - SWELLING [None]
